FAERS Safety Report 7578605-9 (Version None)
Quarter: 2011Q2

REPORT INFORMATION
  Report Type: 
  Country: None (occurrence: None)
  Receive Date: 20110628
  Receipt Date: 20110628
  Transmission Date: 20111010
  Serious: Yes (Hospitalization)
  Sender: FDA-Public Use
  Company Number: JP-B.I. PHARMACEUTICALS,INC./RIDGEFIELD-2011-BP-11260NB

PATIENT
  Sex: Male
  Weight: 61.4 kg

DRUGS (8)
  1. NICHISTATE [Concomitant]
     Dosage: 100 MG
     Dates: end: 20110413
  2. CALBLOCK [Concomitant]
     Dosage: 4 MG
     Dates: end: 20110413
  3. URSO 250 [Concomitant]
     Dosage: 150 MG
     Dates: end: 20110413
  4. CANDESARTAN CILEXETIL [Concomitant]
     Dosage: 8 MG
     Dates: end: 20110413
  5. RUEFRIEN [Concomitant]
     Dosage: 1.5 G
     Dates: end: 20110413
  6. MIRADOL [Concomitant]
     Dosage: 0.3 G
     Dates: end: 20110413
  7. PRADAXA [Suspect]
     Indication: ATRIAL FIBRILLATION
     Dosage: 220 MG
     Route: 048
     Dates: start: 20110405, end: 20110413
  8. TIEKAPTO [Concomitant]
     Dates: end: 20110413

REACTIONS (1)
  - CEREBROVASCULAR ACCIDENT [None]
